FAERS Safety Report 8208646-X (Version None)
Quarter: 2012Q1

REPORT INFORMATION
  Report Type: 
  Country: None (occurrence: None)
  Receive Date: 20120314
  Receipt Date: 20120309
  Transmission Date: 20120608
  Serious: Yes (Other)
  Sender: FDA-Public Use
  Company Number: US-TEVA-323803USA

PATIENT
  Sex: Female

DRUGS (3)
  1. YAZ [Concomitant]
     Indication: CONTRACEPTION
     Route: 048
  2. ANTIBIOTICS [Concomitant]
     Indication: UPPER RESPIRATORY TRACT INFECTION
  3. CLARAVIS [Suspect]
     Dosage: 40 MILLIGRAM;
     Route: 048
     Dates: start: 20111108, end: 20120207

REACTIONS (6)
  - DRUG DOSE OMISSION [None]
  - DEVICE BREAKAGE [None]
  - PREGNANCY ON ORAL CONTRACEPTIVE [None]
  - PREGNANCY WITH CONTRACEPTIVE DEVICE [None]
  - UNINTENDED PREGNANCY [None]
  - UPPER RESPIRATORY TRACT INFECTION [None]
